FAERS Safety Report 23877210 (Version 1)
Quarter: 2024Q2

REPORT INFORMATION
  Report Type: Spontaneous
  Country: JP (occurrence: JP)
  Receive Date: 20240521
  Receipt Date: 20240521
  Transmission Date: 20240715
  Serious: Yes (Hospitalization)
  Sender: FDA-Public Use
  Company Number: JP-SANOFI-AVENTIS R+D-2024SA126942

PATIENT

DRUGS (1)
  1. HYDROXYCHLOROQUINE SULFATE [Suspect]
     Active Substance: HYDROXYCHLOROQUINE SULFATE
     Indication: Product used for unknown indication
     Dosage: UNK UNK, QD (PLAQUENIL) (FILM-COATED TABLET)
     Route: 048
     Dates: end: 20240430

REACTIONS (1)
  - Mental disorder [Recovering/Resolving]
